FAERS Safety Report 18918525 (Version 1)
Quarter: 2021Q1

REPORT INFORMATION
  Report Type: Spontaneous
  Country: CA (occurrence: CA)
  Receive Date: 20210219
  Receipt Date: 20210219
  Transmission Date: 20210420
  Serious: Yes (Other)
  Sender: FDA-Public Use
  Company Number: CA-ROCHE-2768874

PATIENT
  Age: 49 Year
  Sex: Female

DRUGS (8)
  1. PACLITAXEL. [Suspect]
     Active Substance: PACLITAXEL
     Indication: BREAST CANCER FEMALE
     Dosage: LIQUID INTRAVENOUS
     Route: 042
  2. ERIBULIN MESYLATE [Suspect]
     Active Substance: ERIBULIN MESYLATE
     Indication: BREAST CANCER FEMALE
     Route: 065
  3. TAMOXIFEN [Suspect]
     Active Substance: TAMOXIFEN
     Indication: BREAST CANCER FEMALE
     Route: 048
  4. LETROZOLE. [Suspect]
     Active Substance: LETROZOLE
     Indication: BREAST CANCER FEMALE
     Route: 065
  5. CLODRONATE [Suspect]
     Active Substance: CLODRONATE DISODIUM
     Indication: BREAST CANCER FEMALE
     Route: 065
  6. IBRANCE [Suspect]
     Active Substance: PALBOCICLIB
     Indication: BREAST CANCER FEMALE
     Route: 048
  7. XELODA [Suspect]
     Active Substance: CAPECITABINE
     Indication: BREAST CANCER FEMALE
     Route: 065
  8. FULVESTRANT. [Suspect]
     Active Substance: FULVESTRANT
     Indication: BREAST CANCER FEMALE
     Route: 030

REACTIONS (7)
  - Headache [Unknown]
  - Malignant neoplasm progression [Unknown]
  - Meningoencephalitis herpetic [Unknown]
  - Immunosuppression [Unknown]
  - Asthenia [Unknown]
  - Platelet count decreased [Unknown]
  - Protein total increased [Unknown]
